FAERS Safety Report 25644675 (Version 2)
Quarter: 2025Q3

REPORT INFORMATION
  Report Type: Spontaneous
  Country: TR (occurrence: TR)
  Receive Date: 20250805
  Receipt Date: 20250813
  Transmission Date: 20251021
  Serious: Yes (Other)
  Sender: SANOFI AVENTIS
  Company Number: TR-MLMSERVICE-20250724-PI590338-00123-1

PATIENT
  Age: 68 Year
  Sex: Male

DRUGS (8)
  1. DOCETAXEL [Suspect]
     Active Substance: DOCETAXEL
     Indication: Hormone-refractory prostate cancer
     Dates: start: 2020, end: 2020
  2. DOCETAXEL [Suspect]
     Active Substance: DOCETAXEL
     Indication: Prostate cancer metastatic
  3. DOCETAXEL [Suspect]
     Active Substance: DOCETAXEL
     Indication: Metastases to bone
  4. DOCETAXEL [Suspect]
     Active Substance: DOCETAXEL
     Indication: Metastases to lymph nodes
  5. BICALUTAMIDE;LEUPRORELIN [Concomitant]
     Indication: Hormone-refractory prostate cancer
     Dates: start: 2020
  6. BICALUTAMIDE;LEUPRORELIN [Concomitant]
     Indication: Prostate cancer metastatic
  7. BICALUTAMIDE;LEUPRORELIN [Concomitant]
     Indication: Metastases to bone
  8. BICALUTAMIDE;LEUPRORELIN [Concomitant]
     Indication: Metastases to lymph nodes

REACTIONS (2)
  - Leukopenia [Unknown]
  - Neutropenia [Unknown]

NARRATIVE: CASE EVENT DATE: 20200101
